FAERS Safety Report 20429423 (Version 1)
Quarter: 2022Q1

REPORT INFORMATION
  Report Type: Spontaneous
  Country: FR (occurrence: FR)
  Receive Date: 20220204
  Receipt Date: 20220204
  Transmission Date: 20220423
  Serious: Yes (Death, Other)
  Sender: FDA-Public Use
  Company Number: None

PATIENT
  Age: 53 Year
  Sex: Male

DRUGS (6)
  1. LOVENOX [Suspect]
     Active Substance: ENOXAPARIN SODIUM
     Indication: Cardiac valve prosthesis user
     Route: 058
     Dates: start: 20210919, end: 20210924
  2. WARFARIN SODIUM [Suspect]
     Active Substance: WARFARIN SODIUM
     Indication: Cardiac valve prosthesis user
     Dosage: 5 MG, QD
     Route: 048
     Dates: end: 20210919
  3. ATORVASTATIN [Concomitant]
     Active Substance: ATORVASTATIN
  4. ATENOLOL [Concomitant]
     Active Substance: ATENOLOL
  5. ACETAMINOPHEN [Concomitant]
     Active Substance: ACETAMINOPHEN
  6. AMLODIPINE [Concomitant]
     Active Substance: AMLODIPINE BESYLATE

REACTIONS (2)
  - Subdural haematoma [Fatal]
  - Haemorrhage [Fatal]

NARRATIVE: CASE EVENT DATE: 20210919
